FAERS Safety Report 16405141 (Version 3)
Quarter: 2019Q3

REPORT INFORMATION
  Report Type: Spontaneous
  Country: TR (occurrence: TR)
  Receive Date: 20190607
  Receipt Date: 20190924
  Transmission Date: 20191004
  Serious: Yes (Other)
  Sender: FDA-Public Use
  Company Number: TR-PFIZER INC-2019238411

PATIENT
  Age: 4 Year
  Sex: Male

DRUGS (1)
  1. SIROLIMUS. [Suspect]
     Active Substance: SIROLIMUS
     Indication: MALFORMATION VENOUS
     Dosage: 1.2 MG/M2, DAILY

REACTIONS (4)
  - Off label use [Unknown]
  - Soft tissue infection [Unknown]
  - Drug effective for unapproved indication [Unknown]
  - Product use issue [Unknown]
